FAERS Safety Report 5979257-1 (Version None)
Quarter: 2008Q4

REPORT INFORMATION
  Report Type: 
  Country: None (occurrence: None)
  Receive Date: 20081204
  Receipt Date: 20081003
  Transmission Date: 20090506
  Serious: No
  Sender: FDA-Public Use
  Company Number: US-ABBOTT-08P-163-0473954-00

PATIENT
  Sex: Female
  Weight: 90.8 kg

DRUGS (17)
  1. TRICOR [Suspect]
     Indication: BLOOD TRIGLYCERIDES INCREASED
     Route: 048
     Dates: start: 20080601, end: 20080701
  2. TRICOR [Suspect]
     Indication: BLOOD CHOLESTEROL INCREASED
  3. HUMIRA [Suspect]
     Indication: PSORIATIC ARTHROPATHY
     Route: 058
     Dates: start: 20080401, end: 20080701
  4. HUMIRA [Suspect]
     Route: 058
     Dates: start: 20080701
  5. ACETAMINOPHEN W/ PROPOXYPHENE HCL [Concomitant]
     Indication: PAIN
     Route: 048
  6. METHYLPREDNISOLONE 16MG TAB [Concomitant]
     Indication: PSORIATIC ARTHROPATHY
     Route: 048
  7. ATENOLOL [Concomitant]
     Indication: HYPERTENSION
     Route: 048
  8. ALDACTAZIDE-A [Concomitant]
     Indication: HYPERTENSION
     Route: 048
  9. NARINE [Concomitant]
     Indication: SEASONAL ALLERGY
     Route: 048
  10. NARINE [Concomitant]
     Indication: DYSPNOEA
  11. FLEXERIL [Concomitant]
     Indication: PAIN
     Route: 048
  12. DICYCLOMINE HCL [Concomitant]
     Indication: GASTRIC DISORDER
     Dosage: 10-20 MILLIGRAMS AS NEEDED
     Route: 048
  13. HYDROXYZINE [Concomitant]
     Indication: PRURITUS
     Route: 048
  14. ZOLPIDEM TARTRATE [Concomitant]
     Indication: INSOMNIA
     Route: 048
  15. CYANOCOBALAMIN-TANNIN COMPLEX [Concomitant]
     Indication: SUPPLEMENTATION THERAPY
     Route: 060
  16. PLANTAGO OVATA HUSK [Concomitant]
     Indication: BOWEL MOVEMENT IRREGULARITY
     Route: 048
  17. CYAMOPSIS TETRAGONOLOBA GUM [Concomitant]
     Indication: BOWEL MOVEMENT IRREGULARITY
     Route: 048

REACTIONS (13)
  - BLISTER [None]
  - COCCYDYNIA [None]
  - CONSTIPATION [None]
  - DRUG INEFFECTIVE [None]
  - INJECTION SITE HAEMATOMA [None]
  - INJECTION SITE INJURY [None]
  - INJECTION SITE PRURITUS [None]
  - IRRITABLE BOWEL SYNDROME [None]
  - PAIN IN EXTREMITY [None]
  - PHOTOSENSITIVITY REACTION [None]
  - PSORIATIC ARTHROPATHY [None]
  - RASH GENERALISED [None]
  - RASH PAPULAR [None]
